FAERS Safety Report 9220020 (Version 1)
Quarter: 2013Q2

REPORT INFORMATION
  Report Type: Spontaneous
  Country: CN (occurrence: CN)
  Receive Date: 20130409
  Receipt Date: 20130409
  Transmission Date: 20140414
  Serious: Yes (Other)
  Sender: FDA-Public Use
  Company Number: CN-ROCHE-1210103

PATIENT
  Age: 68 Year
  Sex: Female
  Weight: 45 kg

DRUGS (6)
  1. XELODA [Suspect]
     Indication: BREAST CANCER
     Route: 048
     Dates: start: 201210
  2. XELODA [Suspect]
     Indication: METASTASES TO BONE
     Route: 048
  3. HERCEPTIN [Suspect]
     Indication: BREAST CANCER
     Route: 041
     Dates: start: 201209
  4. HERCEPTIN [Suspect]
     Indication: METASTASES TO BONE
  5. ZOMETA [Concomitant]
     Indication: BREAST CANCER
     Route: 041
     Dates: start: 201208
  6. ZOMETA [Concomitant]
     Indication: METASTASES TO BONE

REACTIONS (11)
  - Pain in extremity [Not Recovered/Not Resolved]
  - Blister [Recovered/Resolved]
  - Skin fissures [Not Recovered/Not Resolved]
  - White blood cell count decreased [Unknown]
  - Hypoaesthesia [Not Recovered/Not Resolved]
  - Local swelling [Not Recovered/Not Resolved]
  - Skin discolouration [Not Recovered/Not Resolved]
  - Nail disorder [Not Recovered/Not Resolved]
  - Red blood cell count decreased [Unknown]
  - Tongue discolouration [Not Recovered/Not Resolved]
  - Skin exfoliation [Not Recovered/Not Resolved]
